FAERS Safety Report 8189158-9 (Version None)
Quarter: 2012Q1

REPORT INFORMATION
  Report Type: 
  Country: None (occurrence: None)
  Receive Date: 20120306
  Receipt Date: 20120306
  Transmission Date: 20120608
  Serious: Yes (Life-Threatening, Hospitalization)
  Sender: FDA-Public Use
  Company Number: None

PATIENT
  Age: 16 Year
  Sex: Male
  Weight: 68.0396 kg

DRUGS (1)
  1. CLARAVIS [Suspect]
     Indication: ACNE
     Dosage: 40MG 2 X A DAY
     Dates: start: 20111230, end: 20120208

REACTIONS (16)
  - PARAESTHESIA [None]
  - BACK PAIN [None]
  - ARTHRALGIA [None]
  - DECREASED APPETITE [None]
  - EPISTAXIS [None]
  - DIZZINESS [None]
  - CHAPPED LIPS [None]
  - HYPOAESTHESIA [None]
  - PAIN [None]
  - JAUNDICE [None]
  - THROMBOSIS [None]
  - FATIGUE [None]
  - PRURITUS [None]
  - ORAL HERPES [None]
  - HYPERHIDROSIS [None]
  - WEIGHT DECREASED [None]
